FAERS Safety Report 7291246-6 (Version None)
Quarter: 2011Q1

REPORT INFORMATION
  Report Type: 
  Country: None (occurrence: None)
  Receive Date: 20110214
  Receipt Date: 20110208
  Transmission Date: 20110831
  Serious: Yes (Hospitalization, Other)
  Sender: FDA-Public Use
  Company Number: ES-PFIZER INC-2011028490

PATIENT
  Age: 73 Year
  Sex: Female

DRUGS (6)
  1. ADIRO [Concomitant]
     Indication: ACUTE MYOCARDIAL INFARCTION
     Dosage: 100 MG, 1X/DAY
     Route: 048
     Dates: start: 20100225
  2. CARDYL [Suspect]
     Indication: DYSLIPIDAEMIA
     Dosage: 80 MG, 1X/DAY
     Route: 048
     Dates: start: 20100225, end: 20100322
  3. CARVEDILOL [Concomitant]
     Indication: HYPERTENSION
     Dosage: 6.25 MG, 2X/DAY
     Route: 048
     Dates: start: 20100225
  4. CLOPIDOGREL [Concomitant]
     Indication: ACUTE MYOCARDIAL INFARCTION
     Dosage: 75 MG, 1X/DAY
     Route: 048
     Dates: start: 20100225, end: 20100323
  5. DANATROL [Concomitant]
     Indication: AUTOIMMUNE THROMBOCYTOPENIA
     Dosage: 100 MG, 2X/DAY
     Route: 048
     Dates: start: 19870101
  6. DACORTIN [Concomitant]
     Indication: SYSTEMIC LUPUS ERYTHEMATOSUS
     Dosage: 5 MG, UNK
     Route: 048
     Dates: start: 19870101

REACTIONS (6)
  - RHABDOMYOLYSIS [None]
  - CYTOLYTIC HEPATITIS [None]
  - CONSTIPATION [None]
  - CAPILLARY FRAGILITY [None]
  - RENAL FAILURE ACUTE [None]
  - ECCHYMOSIS [None]
